FAERS Safety Report 8078469-3 (Version None)
Quarter: 2012Q1

REPORT INFORMATION
  Report Type: 
  Country: None (occurrence: None)
  Receive Date: 20120123
  Receipt Date: 20120117
  Transmission Date: 20120608
  Serious: Yes (Hospitalization)
  Sender: FDA-Public Use
  Company Number: IMP_05716_2012

PATIENT
  Age: 71 Year
  Sex: Female

DRUGS (4)
  1. METFORMIN HCL [Suspect]
     Indication: DIABETES MELLITUS
     Dosage: 1700 MG QD
  2. FUROSEMIDE [Concomitant]
  3. GLIMEPIRIDE [Concomitant]
  4. OLMESARTAN MEDOXOMIL [Concomitant]

REACTIONS (12)
  - DIARRHOEA [None]
  - LEFT VENTRICULAR DYSFUNCTION [None]
  - RESPIRATORY ARREST [None]
  - BLOOD PRESSURE DECREASED [None]
  - DEHYDRATION [None]
  - RENAL FAILURE CHRONIC [None]
  - LACTIC ACIDOSIS [None]
  - ABSCESS DRAINAGE [None]
  - MENTAL STATUS CHANGES POSTOPERATIVE [None]
  - SOMNOLENCE [None]
  - HAEMODIALYSIS [None]
  - COMA [None]
